FAERS Safety Report 24825859 (Version 4)
Quarter: 2025Q1

REPORT INFORMATION
  Report Type: Spontaneous
  Country: JP (occurrence: JP)
  Receive Date: 20250109
  Receipt Date: 20250325
  Transmission Date: 20250408
  Serious: Yes (Life-Threatening, Disabling, Other)
  Sender: ALEXION PHARMACEUTICALS
  Company Number: JP-ASTRAZENECA-250001688_013120_P_1

PATIENT
  Age: 74 Year
  Weight: 39 kg

DRUGS (18)
  1. DURVALUMAB [Suspect]
     Active Substance: DURVALUMAB
     Indication: Non-small cell lung cancer
     Dosage: 1500 MILLIGRAM, Q3W
  2. TREMELIMUMAB [Suspect]
     Active Substance: TREMELIMUMAB
     Indication: Non-small cell lung cancer
     Dosage: 75 MILLIGRAM, Q3W
  3. CARBOPLATIN [Suspect]
     Active Substance: CARBOPLATIN
     Indication: Non-small cell lung cancer
     Route: 065
  4. CARBOPLATIN [Suspect]
     Active Substance: CARBOPLATIN
     Route: 065
  5. PACLITAXEL [Suspect]
     Active Substance: PACLITAXEL
     Indication: Non-small cell lung cancer
     Route: 065
  6. ENTECAVIR [Concomitant]
     Active Substance: ENTECAVIR
     Indication: Hepatitis B
     Route: 065
  7. HERBALS [Concomitant]
     Active Substance: HERBALS
     Route: 065
  8. MAGNESIUM OXIDE [Concomitant]
     Active Substance: MAGNESIUM OXIDE
     Route: 065
  9. ALVESCO [Concomitant]
     Active Substance: CICLESONIDE
     Route: 065
  10. SULTANOL [Concomitant]
     Active Substance: ALBUTEROL SULFATE
     Route: 065
  11. OLMESARTAN [Concomitant]
     Active Substance: OLMESARTAN
     Route: 065
  12. DOMPERIDONE [Concomitant]
     Active Substance: DOMPERIDONE
     Route: 065
  13. SODIUM PHOSPHATE [Concomitant]
     Active Substance: SODIUM PHOSPHATE
     Route: 065
  14. DEXLANSOPRAZOLE DELAYED RELEASE [Concomitant]
     Active Substance: DEXLANSOPRAZOLE
  15. Novamin [Concomitant]
  16. ELIQUIS [Concomitant]
     Active Substance: APIXABAN
     Dosage: AFTER MORNING AND EVENING MEALS
  17. FENTANYL [Concomitant]
     Active Substance: FENTANYL
  18. MORPHINE HYDROCHLORIDE [Concomitant]
     Active Substance: MORPHINE HYDROCHLORIDE

REACTIONS (11)
  - Immune-mediated myocarditis [Recovered/Resolved]
  - Rectal perforation [Unknown]
  - Thrombophlebitis migrans [Not Recovered/Not Resolved]
  - Arthritis [Unknown]
  - Tumour associated fever [Unknown]
  - Chondrocalcinosis [Unknown]
  - Productive cough [Unknown]
  - Wheezing [Unknown]
  - Oedema [Unknown]
  - Dyspnoea [Unknown]
  - Immune-mediated hepatitis [Unknown]
